FAERS Safety Report 9866407 (Version 2)
Quarter: 2014Q1

REPORT INFORMATION
  Report Type: Report from Study
  Country: US (occurrence: US)
  Receive Date: 20140204
  Receipt Date: 20140204
  Transmission Date: 20141002
  Serious: Yes (Hospitalization)
  Sender: FDA-Public Use
  Company Number: US-ROCHE-1269443

PATIENT
  Age: 61 Year
  Sex: Male
  Weight: 76 kg

DRUGS (9)
  1. RIBAVIRIN [Suspect]
     Indication: HEPATITIS C
     Route: 065
     Dates: start: 20130523, end: 20130729
  2. ATACAND [Concomitant]
     Indication: HYPERTENSION
     Route: 048
     Dates: start: 1999
  3. LEVOTHYROXINE [Concomitant]
     Indication: THYROID DISORDER
     Route: 048
     Dates: start: 200502
  4. OMEPRAZOLE [Concomitant]
     Indication: GASTROOESOPHAGEAL REFLUX DISEASE
     Route: 048
     Dates: start: 200412
  5. FENOFIBRATE [Concomitant]
     Indication: HYPERCHOLESTEROLAEMIA
     Route: 048
     Dates: start: 201112
  6. METFORMIN [Concomitant]
     Indication: DIABETES MELLITUS
     Route: 048
     Dates: start: 201112
  7. DESOXIMETASONE [Concomitant]
     Indication: PSORIASIS
     Dosage: APPLY THIN FILM.
     Route: 061
     Dates: start: 201201
  8. BI 207127 [Suspect]
     Indication: HEPATITIS C
     Route: 065
     Dates: start: 20130523
  9. BI 201335 [Suspect]
     Indication: HEPATITIS C
     Route: 065
     Dates: start: 20130523

REACTIONS (1)
  - Pancreatitis [Recovered/Resolved]
